FAERS Safety Report 23966106 (Version 1)
Quarter: 2024Q2

REPORT INFORMATION
  Report Type: Spontaneous
  Country: CN (occurrence: CN)
  Receive Date: 20240612
  Receipt Date: 20240612
  Transmission Date: 20240716
  Serious: Yes (Other)
  Sender: FDA-Public Use
  Company Number: CN-BAYER-2024A085126

PATIENT
  Age: 78 Year
  Sex: Male

DRUGS (3)
  1. ULTRAVIST [Suspect]
     Active Substance: IOPROMIDE
     Indication: Aortogram
     Dosage: 100 ML, ONCE
     Route: 042
     Dates: start: 20240521, end: 20240521
  2. ULTRAVIST [Suspect]
     Active Substance: IOPROMIDE
     Indication: Back pain
  3. ULTRAVIST [Suspect]
     Active Substance: IOPROMIDE
     Indication: Pain

REACTIONS (5)
  - Contrast media allergy [Recovering/Resolving]
  - Sneezing [Recovering/Resolving]
  - Dyspnoea [Recovering/Resolving]
  - Nasal congestion [Recovering/Resolving]
  - Pruritus [Recovering/Resolving]

NARRATIVE: CASE EVENT DATE: 20240521
